FAERS Safety Report 19972522 (Version 4)
Quarter: 2021Q4

REPORT INFORMATION
  Report Type: Spontaneous
  Country: US (occurrence: US)
  Receive Date: 20211019
  Receipt Date: 20211214
  Transmission Date: 20220303
  Serious: Yes (Hospitalization, Other)
  Sender: FDA-Public Use
  Company Number: US-SANOFI-00812701

PATIENT
  Age: 70 Year
  Sex: Female

DRUGS (4)
  1. LANTUS [Suspect]
     Active Substance: INSULIN GLARGINE
     Indication: Type 2 diabetes mellitus
     Dosage: 30 IU, QD
     Route: 065
     Dates: start: 202106
  2. LANTUS [Suspect]
     Active Substance: INSULIN GLARGINE
     Dosage: SOMETIMES TAKES 29 UNITS, SOMETIMES 29.5 AND SOMETIMES 30, ONCE DAILY
     Route: 065
  3. LANTUS [Suspect]
     Active Substance: INSULIN GLARGINE
     Dosage: 27 IU, QD
     Route: 065
  4. METFORMIN HYDROCHLORIDE [Suspect]
     Active Substance: METFORMIN HYDROCHLORIDE
     Dosage: UNK
     Route: 065

REACTIONS (7)
  - Renal cancer [Unknown]
  - Blood glucose abnormal [Not Recovered/Not Resolved]
  - Product storage error [Not Recovered/Not Resolved]
  - Product quality issue [Not Recovered/Not Resolved]
  - Illness [Unknown]
  - Injection site pain [Not Recovered/Not Resolved]
  - Intentional product misuse [Unknown]
